FAERS Safety Report 9651581 (Version 2)
Quarter: 2013Q4

REPORT INFORMATION
  Report Type: Report from Study
  Country: FI (occurrence: FI)
  Receive Date: 20131029
  Receipt Date: 20131106
  Transmission Date: 20140711
  Serious: Yes (Other)
  Sender: FDA-Public Use
  Company Number: FI-ASTELLAS-2013EU009144

PATIENT
  Age: 60 Year
  Sex: Male

DRUGS (14)
  1. XTANDI [Suspect]
     Indication: PROSTATE CANCER
     Dosage: UNK
     Route: 065
     Dates: start: 20130927
  2. SOMAC [Concomitant]
     Dosage: 40 MG, UID/QD
     Route: 065
  3. KALCIPOS-D [Concomitant]
     Dosage: UNK
     Route: 065
  4. CLOPIDOGREL KRKA [Concomitant]
     Dosage: 75 MG, UID/QD
     Route: 065
  5. ASPIRIN CARDIO [Concomitant]
     Dosage: 100 MG, UID/QD
     Route: 065
  6. BISOPROLOL RATIOPHARM [Concomitant]
     Dosage: 5 MG, OTHER
     Route: 065
  7. ZOLADEX                            /00732101/ [Concomitant]
     Dosage: 10.8 MG, OTHER
     Route: 065
  8. ZOMETA [Concomitant]
     Dosage: UNK MG/ML, OTHER
     Route: 065
  9. PRIMPERAN [Concomitant]
     Dosage: 10 MG, PRN
     Route: 065
  10. NITRO                              /00003201/ [Concomitant]
     Dosage: 0.5 MG, PRN
     Route: 065
  11. BURANA [Concomitant]
     Dosage: 600 MG, OTHER
     Route: 065
  12. PANACOD [Concomitant]
     Dosage: UNK
     Route: 065
  13. PARA-TABS [Concomitant]
     Dosage: 1 G, OTHER
     Route: 065
  14. ZOPINOX [Concomitant]
     Dosage: 7.5 MG, UID/QD
     Route: 065

REACTIONS (1)
  - Dyskinesia [Recovering/Resolving]
